FAERS Safety Report 12790944 (Version 1)
Quarter: 2016Q3

REPORT INFORMATION
  Report Type: Spontaneous
  Country: US (occurrence: US)
  Receive Date: 20160929
  Receipt Date: 20160929
  Transmission Date: 20161109
  Serious: No
  Sender: FDA-Public Use
  Company Number: ALCN2016US006641

PATIENT
  Sex: Female

DRUGS (2)
  1. SYSTANE PF [Suspect]
     Active Substance: POLYETHYLENE GLYCOL 400\PROPYLENE GLYCOL
     Indication: DRY EYE
     Dosage: UNK GTT, PRN
     Route: 047
     Dates: start: 2015
  2. SYSTANE PF [Suspect]
     Active Substance: POLYETHYLENE GLYCOL 400\PROPYLENE GLYCOL
     Dosage: UNK GTT, PRN
     Route: 047

REACTIONS (2)
  - Eyelid disorder [Recovered/Resolved]
  - Eyelid disorder [Not Recovered/Not Resolved]
